FAERS Safety Report 19679980 (Version 3)
Quarter: 2022Q3

REPORT INFORMATION
  Report Type: Spontaneous
  Country: SE (occurrence: SE)
  Receive Date: 20210809
  Receipt Date: 20220921
  Transmission Date: 20221027
  Serious: Yes (Death, Life-Threatening, Hospitalization, Other)
  Sender: FDA-Public Use
  Company Number: SE-NOVARTISPH-NVSC2021SE178733

PATIENT
  Age: 72 Year
  Sex: Male
  Weight: 73 kg

DRUGS (54)
  1. OXALIPLATIN [Suspect]
     Active Substance: OXALIPLATIN
     Indication: Diffuse large B-cell lymphoma stage IV
     Dosage: 187 MG, ONCE/SINGLE
     Route: 042
     Dates: start: 20210202, end: 20210202
  2. OXALIPLATIN [Suspect]
     Active Substance: OXALIPLATIN
     Dosage: 182 MG, ONCE/SINGLE
     Route: 042
     Dates: start: 20210531, end: 20210531
  3. OXALIPLATIN [Suspect]
     Active Substance: OXALIPLATIN
     Dosage: 182 MG, ONCE/SINGLE
     Route: 042
     Dates: start: 20210312, end: 20210312
  4. OXALIPLATIN [Suspect]
     Active Substance: OXALIPLATIN
     Dosage: 181 MG, ONCE/SINGLE
     Route: 042
     Dates: start: 20210326, end: 20210326
  5. OXALIPLATIN [Suspect]
     Active Substance: OXALIPLATIN
     Dosage: 181 MG, ONCE/SINGLE
     Route: 042
     Dates: start: 20210413, end: 20210413
  6. OXALIPLATIN [Suspect]
     Active Substance: OXALIPLATIN
     Dosage: 182 MG, ONCE/SINGLE
     Route: 042
     Dates: start: 20210429, end: 20210429
  7. OXALIPLATIN [Suspect]
     Active Substance: OXALIPLATIN
     Dosage: 182 MG, ONCE/SINGLE
     Route: 042
     Dates: start: 20210517, end: 20210517
  8. OXALIPLATIN [Suspect]
     Active Substance: OXALIPLATIN
     Dosage: 182 MG, ONCE/SINGLE
     Route: 042
     Dates: start: 20210531, end: 20210531
  9. OXALIPLATIN [Suspect]
     Active Substance: OXALIPLATIN
     Dosage: 100 MG/M2, Q2W
     Route: 042
     Dates: start: 20210608, end: 20210706
  10. OXALIPLATIN [Suspect]
     Active Substance: OXALIPLATIN
     Dosage: 183 MG, ONCE/SINGLE
     Route: 042
     Dates: start: 20210223, end: 20210223
  11. GEMCITABINE [Suspect]
     Active Substance: GEMCITABINE
     Indication: Diffuse large B-cell lymphoma stage IV
     Dosage: 1870 MG, ONCE/SINGLE
     Route: 042
     Dates: start: 20210202, end: 20210202
  12. GEMCITABINE [Suspect]
     Active Substance: GEMCITABINE
     Dosage: 1830 MG, ONCE/SINGLE
     Route: 042
     Dates: start: 20210223, end: 20210223
  13. GEMCITABINE [Suspect]
     Active Substance: GEMCITABINE
     Dosage: 1820 MG, ONCE/SINGLE
     Route: 042
     Dates: start: 20210312, end: 20210312
  14. GEMCITABINE [Suspect]
     Active Substance: GEMCITABINE
     Dosage: 1810 MG, ONCE/SINGLE
     Route: 042
     Dates: start: 20210326, end: 20210326
  15. GEMCITABINE [Suspect]
     Active Substance: GEMCITABINE
     Dosage: 1810 MG, ONCE/SINGLE
     Route: 042
     Dates: start: 20210413, end: 20210413
  16. GEMCITABINE [Suspect]
     Active Substance: GEMCITABINE
     Dosage: 1820 MG, ONCE/SINGLE
     Route: 042
     Dates: start: 20210429, end: 20210429
  17. GEMCITABINE [Suspect]
     Active Substance: GEMCITABINE
     Dosage: 1820 MG, ONCE/SINGLE
     Route: 042
     Dates: start: 20210517, end: 20210517
  18. GEMCITABINE [Suspect]
     Active Substance: GEMCITABINE
     Dosage: 1820 MG, ONCE/SINGLE
     Route: 042
     Dates: start: 20210531, end: 20210531
  19. GEMCITABINE [Suspect]
     Active Substance: GEMCITABINE
     Dosage: 1000 MG/M2, Q2W
     Route: 042
     Dates: start: 20210608, end: 20210706
  20. SOLU-MEDROL [Concomitant]
     Active Substance: METHYLPREDNISOLONE SODIUM SUCCINATE
     Indication: Product used for unknown indication
     Dosage: UNK
     Route: 065
     Dates: start: 20210319
  21. PANTOPRAZOLE [Concomitant]
     Active Substance: PANTOPRAZOLE
     Indication: Product used for unknown indication
     Dosage: UNK
     Route: 065
     Dates: start: 20200511, end: 20210704
  22. PREDNISOLONE [Concomitant]
     Active Substance: PREDNISOLONE
     Indication: Product used for unknown indication
     Dosage: UNK
     Route: 065
     Dates: start: 20210514, end: 20210531
  23. ACYCLOVIR [Concomitant]
     Active Substance: ACYCLOVIR
     Indication: Product used for unknown indication
     Dosage: UNK
     Route: 065
     Dates: start: 20210215, end: 20210624
  24. ACYCLOVIR [Concomitant]
     Active Substance: ACYCLOVIR
     Dosage: UNK
     Route: 065
     Dates: start: 20200916
  25. CALCIUM CARBONATE [Concomitant]
     Active Substance: CALCIUM CARBONATE
     Indication: Product used for unknown indication
     Dosage: UNK
     Route: 065
     Dates: start: 20200402, end: 20210702
  26. ALLOPURINOL [Concomitant]
     Active Substance: ALLOPURINOL
     Indication: Product used for unknown indication
     Dosage: UNK
     Route: 065
     Dates: start: 20210517, end: 20210517
  27. POTASSIUM CHLORIDE [Concomitant]
     Active Substance: POTASSIUM CHLORIDE
     Indication: Product used for unknown indication
     Dosage: UNK
     Route: 065
     Dates: start: 20210608, end: 20210614
  28. ONDANSETRON [Concomitant]
     Active Substance: ONDANSETRON
     Indication: Product used for unknown indication
     Dosage: UNK
     Route: 065
     Dates: start: 20210517, end: 20210517
  29. ATENOLOL [Concomitant]
     Active Substance: ATENOLOL
     Indication: Product used for unknown indication
     Dosage: UNK
     Route: 065
     Dates: start: 20210616, end: 20210704
  30. ACETAMINOPHEN [Concomitant]
     Active Substance: ACETAMINOPHEN
     Indication: Product used for unknown indication
     Dosage: UNK
     Route: 065
     Dates: start: 20210514, end: 20210624
  31. ACETAMINOPHEN [Concomitant]
     Active Substance: ACETAMINOPHEN
     Dosage: 1 G
     Route: 048
     Dates: start: 20210713, end: 20210713
  32. ACETAMINOPHEN [Concomitant]
     Active Substance: ACETAMINOPHEN
     Dosage: UNK
     Route: 065
     Dates: start: 20210713, end: 20210713
  33. PEGFILGRASTIM [Concomitant]
     Active Substance: PEGFILGRASTIM
     Indication: Product used for unknown indication
     Dosage: UNK
     Route: 065
     Dates: start: 20210520, end: 20210520
  34. PEGFILGRASTIM [Concomitant]
     Active Substance: PEGFILGRASTIM
     Dosage: UNK
     Route: 065
     Dates: start: 20210612, end: 20210706
  35. CALCIUM POLYSTYRENE SULFONATE [Concomitant]
     Active Substance: CALCIUM POLYSTYRENE SULFONATE
     Indication: Product used for unknown indication
     Dosage: UNK
     Route: 065
     Dates: start: 20210701, end: 20210704
  36. CETIRIZINE HYDROCHLORIDE [Concomitant]
     Active Substance: CETIRIZINE HYDROCHLORIDE
     Indication: Product used for unknown indication
     Dosage: UNK
     Route: 065
     Dates: start: 20210514, end: 20210531
  37. CETIRIZINE HYDROCHLORIDE [Concomitant]
     Active Substance: CETIRIZINE HYDROCHLORIDE
     Route: 048
     Dates: start: 20210713, end: 20210713
  38. FIBRINOGEN [Concomitant]
     Active Substance: FIBRINOGEN HUMAN
     Indication: Product used for unknown indication
     Dosage: UNK
     Route: 065
     Dates: start: 20210707, end: 20210707
  39. SPIRONOLACTONE [Concomitant]
     Active Substance: SPIRONOLACTONE
     Indication: Product used for unknown indication
     Dosage: UNK
     Route: 065
     Dates: start: 20210618, end: 20210630
  40. ZOPICLONE [Concomitant]
     Active Substance: ZOPICLONE
     Indication: Product used for unknown indication
     Dosage: UNK
     Route: 065
     Dates: start: 20200318, end: 20210704
  41. FUROSEMIDE [Concomitant]
     Active Substance: FUROSEMIDE
     Indication: Product used for unknown indication
     Dosage: UNK
     Route: 065
     Dates: start: 20210613, end: 20210704
  42. DALTEPARIN [Concomitant]
     Active Substance: DALTEPARIN
     Indication: Product used for unknown indication
     Dosage: UNK
     Route: 065
     Dates: start: 20210326, end: 20210525
  43. TOCILIZUMAB [Concomitant]
     Active Substance: TOCILIZUMAB
     Indication: Product used for unknown indication
     Dosage: UNK
     Route: 065
     Dates: start: 20210706, end: 20210707
  44. TOCILIZUMAB [Concomitant]
     Active Substance: TOCILIZUMAB
     Dosage: UNK
     Route: 065
     Dates: start: 20210707, end: 20210707
  45. TOCILIZUMAB [Concomitant]
     Active Substance: TOCILIZUMAB
     Dosage: UNK
     Route: 065
     Dates: start: 20210706, end: 20210707
  46. DIGOXIN [Concomitant]
     Active Substance: DIGOXIN
     Indication: Product used for unknown indication
     Dosage: UNK
     Route: 065
     Dates: start: 20210705, end: 20210706
  47. DEXAMETHASONE SODIUM PHOSPHATE [Concomitant]
     Active Substance: DEXAMETHASONE SODIUM PHOSPHATE
     Indication: Product used for unknown indication
     Dosage: UNK
     Route: 065
     Dates: start: 20210707, end: 20210710
  48. CHOLECALCIFEROL [Concomitant]
     Active Substance: CHOLECALCIFEROL
     Indication: Product used for unknown indication
     Dosage: UNK
     Route: 065
     Dates: start: 20200408, end: 20210704
  49. CALCIUM CHLORIDE [Concomitant]
     Active Substance: CALCIUM CHLORIDE
     Indication: Product used for unknown indication
     Dosage: UNK
     Route: 065
     Dates: start: 20210706, end: 20210707
  50. PREDNISONE [Concomitant]
     Active Substance: PREDNISONE
     Indication: Product used for unknown indication
     Dosage: UNK
     Route: 065
     Dates: start: 20210706, end: 20210709
  51. PREDNISONE [Concomitant]
     Active Substance: PREDNISONE
     Dosage: UNK
     Route: 065
     Dates: start: 20210713, end: 20210716
  52. PREDNISONE [Concomitant]
     Active Substance: PREDNISONE
     Dosage: 100 MG
     Route: 048
     Dates: start: 20210713, end: 20210716
  53. FILGRASTIM [Concomitant]
     Active Substance: FILGRASTIM
     Indication: Product used for unknown indication
     Dosage: UNK
     Route: 065
     Dates: start: 20210612, end: 20210706
  54. LEVETIRACETAM [Concomitant]
     Active Substance: LEVETIRACETAM
     Indication: Product used for unknown indication
     Dosage: UNK
     Route: 065
     Dates: start: 20210706, end: 20210707

REACTIONS (5)
  - Small intestinal perforation [Fatal]
  - Ascites [Fatal]
  - Multiple organ dysfunction syndrome [Fatal]
  - Cytokine release syndrome [Recovered/Resolved]
  - Off label use [Unknown]

NARRATIVE: CASE EVENT DATE: 20210606
